FAERS Safety Report 9309005 (Version 3)
Quarter: 2014Q1

REPORT INFORMATION
  Report Type: Report from Study
  Country: US (occurrence: US)
  Receive Date: 20130524
  Receipt Date: 20140102
  Transmission Date: 20141002
  Serious: Yes (Disabling)
  Sender: FDA-Public Use
  Company Number: US-US-EMD SERONO, INC.-7212670

PATIENT
  Sex: Female

DRUGS (3)
  1. REBIF [Suspect]
     Indication: MULTIPLE SCLEROSIS
     Route: 058
     Dates: start: 2006
  2. REBIF [Suspect]
     Route: 058
     Dates: start: 20120822, end: 20121220
  3. REBIF [Suspect]
     Route: 058
     Dates: start: 20130625

REACTIONS (1)
  - Blindness unilateral [Unknown]
